FAERS Safety Report 15516800 (Version 2)
Quarter: 2019Q3

REPORT INFORMATION
  Report Type: Spontaneous
  Country: US (occurrence: US)
  Receive Date: 20181017
  Receipt Date: 20190724
  Transmission Date: 20191004
  Serious: No
  Sender: FDA-Public Use
  Company Number: US-APOTEX-2018AP021073

PATIENT
  Sex: Male

DRUGS (3)
  1. GLIPIZIDE. [Suspect]
     Active Substance: GLIPIZIDE
     Indication: DIABETES MELLITUS
     Dosage: 10 MG, Q.AM (BEFORE MEAL)
     Route: 065
     Dates: start: 20180628
  2. GLIPIZIDE. [Suspect]
     Active Substance: GLIPIZIDE
     Dosage: 10 MG, Q.H.S. (BEFORE MEAL)
     Route: 065
  3. GLUCOPHAGE [Concomitant]
     Active Substance: METFORMIN HYDROCHLORIDE
     Indication: PRODUCT USED FOR UNKNOWN INDICATION
     Dosage: 1000 MG, UNKNOWN
     Route: 065

REACTIONS (5)
  - Product substitution issue [Unknown]
  - Product quality issue [Unknown]
  - Blood glucose increased [Unknown]
  - Glycosylated haemoglobin increased [Unknown]
  - Blood glucose decreased [Unknown]
